FAERS Safety Report 20224211 (Version 6)
Quarter: 2022Q1

REPORT INFORMATION
  Report Type: Report from Study
  Country: CZ (occurrence: None)
  Receive Date: 20211223
  Receipt Date: 20220318
  Transmission Date: 20220423
  Serious: Yes (Death, Hospitalization)
  Sender: FDA-Public Use
  Company Number: CZ-Eisai Medical Research-EC-2021-102927

PATIENT
  Age: 15 Year
  Sex: Female
  Weight: 73 kg

DRUGS (7)
  1. LENVATINIB [Suspect]
     Active Substance: LENVATINIB
     Indication: Osteosarcoma
     Route: 048
     Dates: start: 20211025, end: 20211215
  2. IFOSFAMIDE [Suspect]
     Active Substance: IFOSFAMIDE
     Indication: Osteosarcoma
     Route: 041
     Dates: start: 20211025, end: 20211027
  3. IFOSFAMIDE [Suspect]
     Active Substance: IFOSFAMIDE
     Route: 041
     Dates: start: 20211116, end: 20211118
  4. IFOSFAMIDE [Suspect]
     Active Substance: IFOSFAMIDE
     Route: 041
     Dates: start: 20211210, end: 20211210
  5. ETOPOSIDE [Suspect]
     Active Substance: ETOPOSIDE
     Indication: Osteosarcoma
     Route: 041
     Dates: start: 20211025, end: 20211027
  6. ETOPOSIDE [Suspect]
     Active Substance: ETOPOSIDE
     Route: 041
     Dates: start: 20211116, end: 20211118
  7. ETOPOSIDE [Suspect]
     Active Substance: ETOPOSIDE
     Route: 041
     Dates: start: 20211210, end: 20211212

REACTIONS (4)
  - Pneumonia [Recovered/Resolved]
  - Encephalopathy [Recovered/Resolved]
  - Febrile neutropenia [Recovered/Resolved]
  - Cardiac failure [Fatal]

NARRATIVE: CASE EVENT DATE: 20211104
